FAERS Safety Report 8983900 (Version 3)
Quarter: 2013Q4

REPORT INFORMATION
  Report Type: Report from Study
  Country: IT (occurrence: IT)
  Receive Date: 20121224
  Receipt Date: 20131216
  Transmission Date: 20140711
  Serious: Yes (Hospitalization, Other)
  Sender: FDA-Public Use
  Company Number: IT-GILEAD-2012-0066927

PATIENT
  Age: 55 Year
  Sex: Male
  Weight: 65 kg

DRUGS (5)
  1. BLINDED PLACEBO [Suspect]
     Indication: HYPERTROPHIC CARDIOMYOPATHY
     Dosage: UNK
     Route: 048
     Dates: start: 20120913
  2. BLINDED RANOLAZINE [Suspect]
     Indication: HYPERTROPHIC CARDIOMYOPATHY
     Dosage: UNK
     Route: 048
     Dates: start: 20120913
  3. METOPROLOL [Concomitant]
     Dosage: UNK
  4. TRIATEC                            /00885601/ [Concomitant]
     Dosage: UNK
  5. CARDIOASPIRIN [Concomitant]

REACTIONS (3)
  - Lower respiratory tract infection [Recovered/Resolved]
  - Acute respiratory failure [Recovered/Resolved]
  - Cardiac failure chronic [Not Recovered/Not Resolved]
